FAERS Safety Report 17822931 (Version 1)
Quarter: 2020Q2

REPORT INFORMATION
  Report Type: Spontaneous
  Country: US (occurrence: US)
  Receive Date: 20200522
  Receipt Date: 20200522
  Transmission Date: 20200714
  Serious: Yes (Hospitalization)
  Sender: FDA-Public Use
  Company Number: None

PATIENT
  Age: 75 Year
  Sex: Female

DRUGS (19)
  1. ORENITRAM [Suspect]
     Active Substance: TREPROSTINIL
  2. GLUCOSAMINE [Concomitant]
     Active Substance: GLUCOSAMINE
  3. ALEVE [Concomitant]
     Active Substance: NAPROXEN SODIUM
  4. ASPIRIN. [Concomitant]
     Active Substance: ASPIRIN
  5. CALCIUM CIT/VIT D [Concomitant]
  6. FISH OIL [Concomitant]
     Active Substance: FISH OIL
  7. OXYBUTYNIN. [Concomitant]
     Active Substance: OXYBUTYNIN CHLORIDE
  8. FLONASE ALGY [Concomitant]
  9. LIPITOR [Concomitant]
     Active Substance: ATORVASTATIN CALCIUM
  10. MULTIVITAMIN [Concomitant]
     Active Substance: VITAMINS
  11. SPIRIVA [Concomitant]
     Active Substance: TIOTROPIUM BROMIDE MONOHYDRATE
  12. ADVAIR DISKU AER [Concomitant]
  13. RALOXIFENE. [Concomitant]
     Active Substance: RALOXIFENE
  14. RANITIDINE. [Concomitant]
     Active Substance: RANITIDINE
  15. ADEMPAS [Concomitant]
     Active Substance: RIOCIGUAT
  16. AMBRISENTAN [Concomitant]
     Active Substance: AMBRISENTAN
  17. GARLIC. [Concomitant]
     Active Substance: GARLIC
  18. GINGKO BILOB [Concomitant]
  19. SERTRALINE [Concomitant]
     Active Substance: SERTRALINE HYDROCHLORIDE

REACTIONS (1)
  - Adverse drug reaction [None]

NARRATIVE: CASE EVENT DATE: 20200512
